FAERS Safety Report 14544223 (Version 1)
Quarter: 2018Q1

REPORT INFORMATION
  Report Type: Spontaneous
  Country: US (occurrence: US)
  Receive Date: 20180215
  Receipt Date: 20180215
  Transmission Date: 20180509
  Serious: No
  Sender: FDA-Public Use
  Company Number: None

PATIENT
  Age: 63 Year
  Sex: Male
  Weight: 68.04 kg

DRUGS (1)
  1. OCREVUS [Suspect]
     Active Substance: OCRELIZUMAB
     Indication: MULTIPLE SCLEROSIS
     Dosage: EVERY 6 MONTHS
     Route: 042
     Dates: end: 20180205

REACTIONS (3)
  - Blood pressure increased [None]
  - Pallor [None]
  - Cold sweat [None]

NARRATIVE: CASE EVENT DATE: 20180205
